FAERS Safety Report 5861038-0 (Version None)
Quarter: 2008Q3

REPORT INFORMATION
  Report Type: 
  Country: None (occurrence: None)
  Receive Date: 20080827
  Receipt Date: 20080818
  Transmission Date: 20090109
  Serious: Yes (Death)
  Sender: FDA-Public Use
  Company Number: JP-ABBOTT-08P-087-0472335-00

PATIENT
  Age: 72 Year
  Sex: Male

DRUGS (8)
  1. LEUPROLIDE ACETATE [Suspect]
     Indication: PROSTATE CANCER STAGE II
     Route: 058
     Dates: start: 20060622, end: 20070830
  2. LEUPROLIDE ACETATE [Suspect]
     Route: 058
     Dates: start: 20080228, end: 20080228
  3. THEOPHYLLINE [Concomitant]
     Indication: EMPHYSEMA
     Route: 048
  4. CARBOCISTEINE [Concomitant]
     Indication: EMPHYSEMA
     Route: 048
  5. AMBROXOL [Concomitant]
     Indication: EMPHYSEMA
     Route: 048
  6. TIOTROPIUM BROMIDE [Concomitant]
     Indication: EMPHYSEMA
     Route: 055
  7. SALMETEROL [Concomitant]
     Indication: EMPHYSEMA
     Route: 055
  8. FLUTICASONE PROPIONATE [Concomitant]
     Indication: EMPHYSEMA
     Route: 055

REACTIONS (1)
  - CHRONIC RESPIRATORY FAILURE [None]
